FAERS Safety Report 24849846 (Version 3)
Quarter: 2025Q2

REPORT INFORMATION
  Report Type: Spontaneous
  Country: IT (occurrence: IT)
  Receive Date: 20250116
  Receipt Date: 20250417
  Transmission Date: 20250716
  Serious: Yes (Hospitalization, Other)
  Sender: BRISTOL MYERS SQUIBB
  Company Number: IT-BRISTOL-MYERS SQUIBB COMPANY-2025-006005

PATIENT
  Age: 50 Year
  Sex: Female

DRUGS (2)
  1. LUSPATERCEPT [Suspect]
     Active Substance: LUSPATERCEPT
     Indication: Thalassaemia beta
     Dates: start: 2018
  2. LUSPATERCEPT [Suspect]
     Active Substance: LUSPATERCEPT
     Dates: start: 20241021

REACTIONS (1)
  - Omental infarction [Recovering/Resolving]

NARRATIVE: CASE EVENT DATE: 20241029
